FAERS Safety Report 24685236 (Version 1)
Quarter: 2024Q4

REPORT INFORMATION
  Report Type: Spontaneous
  Country: JP (occurrence: JP)
  Receive Date: 20241202
  Receipt Date: 20241202
  Transmission Date: 20250115
  Serious: Yes (Death)
  Sender: Vantive US Healthcare
  Company Number: JP-VANTIVE-2024VAN021238

PATIENT
  Age: 90 Year
  Sex: Female

DRUGS (1)
  1. REGUNEAL LCA [Suspect]
     Active Substance: CALCIUM CHLORIDE\DEXTROSE MONOHYDRATE\HYDROCHLORIC ACID\MAGNESIUM CHLORIDE\SODIUM BICARBONATE\SODIUM
     Indication: Renal failure
     Dosage: 1500 ML, 3 (DETAILS NOT REPORTED)
     Route: 033
     Dates: start: 20200115

REACTIONS (1)
  - Marasmus [Fatal]
